FAERS Safety Report 17562211 (Version 1)
Quarter: 2020Q1

REPORT INFORMATION
  Report Type: Spontaneous
  Country: US (occurrence: US)
  Receive Date: 20200319
  Receipt Date: 20200319
  Transmission Date: 20200409
  Serious: Yes (Other)
  Sender: FDA-Public Use
  Company Number: US-MALLINCKRODT-T202000859

PATIENT
  Age: 1 Year
  Sex: Male

DRUGS (2)
  1. VIGABATRIN. [Concomitant]
     Active Substance: VIGABATRIN
     Indication: MUSCLE SPASMS
     Dosage: UNK
     Route: 065
  2. H.P. ACTHAR [Suspect]
     Active Substance: CORTICOTROPIN
     Indication: INFANTILE SPASMS
     Dosage: 0.4 ML, TWICE A DAY FOR TWO WEEKS
     Route: 030

REACTIONS (11)
  - Respiratory tract infection [Unknown]
  - Rhinorrhoea [Unknown]
  - Oral candidiasis [Recovered/Resolved]
  - Electroencephalogram abnormal [Unknown]
  - Irritability [Unknown]
  - Dyskinesia [Unknown]
  - Seizure [Unknown]
  - Hypersomnia [Unknown]
  - Unresponsive to stimuli [Unknown]
  - Product dose omission [Not Recovered/Not Resolved]
  - Nasal congestion [Not Recovered/Not Resolved]

NARRATIVE: CASE EVENT DATE: 202002
